FAERS Safety Report 17895264 (Version 1)
Quarter: 2020Q2

REPORT INFORMATION
  Report Type: Spontaneous
  Country: US (occurrence: US)
  Receive Date: 20200612
  Receipt Date: 20200612
  Transmission Date: 20200714
  Serious: Yes (Disabling)
  Sender: FDA-Public Use
  Company Number: None

PATIENT
  Age: 23 Year
  Sex: Female
  Weight: 127.46 kg

DRUGS (4)
  1. SERTRALINE [Concomitant]
     Active Substance: SERTRALINE HYDROCHLORIDE
  2. BUPROPION XL (WELLBUTRIN XL) 300MG/DAY [Concomitant]
  3. ACETAZOLAMIDE. [Suspect]
     Active Substance: ACETAZOLAMIDE
  4. NEXPLANON [Suspect]
     Active Substance: ETONOGESTREL
     Indication: CONTRACEPTION
     Dosage: ONCE EVERY 3 YEARS
     Route: 058
     Dates: start: 20160526, end: 20200612

REACTIONS (9)
  - Mental disorder [None]
  - Hallucinations, mixed [None]
  - Breakthrough pain [None]
  - Thunderclap headache [None]
  - Visual impairment [None]
  - Loss of personal independence in daily activities [None]
  - Nausea [None]
  - Idiopathic intracranial hypertension [None]
  - Sedation [None]

NARRATIVE: CASE EVENT DATE: 20190406
